FAERS Safety Report 4487585-4 (Version None)
Quarter: 2004Q4

REPORT INFORMATION
  Report Type: 
  Country: None (occurrence: None)
  Receive Date: 20041027
  Receipt Date: 20041027
  Transmission Date: 20050328
  Serious: Yes (Hospitalization)
  Sender: FDA-Public Use
  Company Number: None

PATIENT
  Age: 76 Year
  Sex: Female

DRUGS (2)
  1. GEMTUZUMAB [Suspect]
     Indication: ACUTE MYELOID LEUKAEMIA
     Dosage: 9 MG/M2  X 2 DOSES  INTRAVENOU
     Route: 042
     Dates: start: 20040316, end: 20040331
  2. GEMTUZUMAB [Suspect]
     Indication: LEUKAEMIA RECURRENT
     Dosage: 9 MG/M2  X 2 DOSES  INTRAVENOU
     Route: 042
     Dates: start: 20040316, end: 20040331

REACTIONS (1)
  - PANCYTOPENIA [None]
